FAERS Safety Report 20328893 (Version 1)
Quarter: 2022Q1

REPORT INFORMATION
  Report Type: Spontaneous
  Country: US (occurrence: None)
  Receive Date: 20220112
  Receipt Date: 20220112
  Transmission Date: 20220423
  Serious: Yes (Other)
  Sender: FDA-Public Use
  Company Number: None

PATIENT
  Age: 52 Year
  Sex: Female
  Weight: 96.3 kg

DRUGS (2)
  1. LUMASON [Suspect]
     Active Substance: SULFUR HEXAFLUORIDE
     Indication: Echocardiogram
     Dosage: FREQUENCY : ONCE;?
     Route: 042
     Dates: start: 20220112, end: 20220112
  2. LUMASON [Concomitant]
     Active Substance: SULFUR HEXAFLUORIDE
     Dates: start: 20220112, end: 20220112

REACTIONS (6)
  - Contrast media reaction [None]
  - Pruritus [None]
  - Urticaria [None]
  - Dysphagia [None]
  - Dyspnoea [None]
  - Stress [None]

NARRATIVE: CASE EVENT DATE: 20220112
